FAERS Safety Report 4558207-9 (Version None)
Quarter: 2005Q1

REPORT INFORMATION
  Report Type: 
  Country: None (occurrence: None)
  Receive Date: 20050103
  Receipt Date: 20041025
  Transmission Date: 20050727
  Serious: Yes (Other)
  Sender: FDA-Public Use
  Company Number: 2004UW22152

PATIENT
  Age: 71 Year
  Weight: 74.842 kg

DRUGS (10)
  1. CRESTOR [Suspect]
     Indication: BLOOD CHOLESTEROL INCREASED
     Dosage: 10 MG PO
     Route: 048
     Dates: start: 20040101
  2. CRESTOR [Suspect]
     Indication: BLOOD TRIGLYCERIDES INCREASED
     Dosage: 10 MG PO
     Route: 048
     Dates: start: 20040101
  3. EFFEXOR [Concomitant]
  4. THYROID TAB [Concomitant]
  5. PREDNISONE [Concomitant]
  6. PREMARIN [Concomitant]
  7. BIOTIN [Concomitant]
  8. HYDROCHLOROTHIAZIDE [Concomitant]
  9. OCUVITE [Concomitant]
  10. CHROMIUM [Concomitant]

REACTIONS (1)
  - ALOPECIA [None]
